FAERS Safety Report 11226205 (Version 1)
Quarter: 2015Q2

REPORT INFORMATION
  Report Type: Spontaneous
  Country: US (occurrence: US)
  Receive Date: 20150629
  Receipt Date: 20150629
  Transmission Date: 20150821
  Serious: Yes (Hospitalization)
  Sender: FDA-Public Use
  Company Number: US-MYLANLABS-2014S1017962

PATIENT
  Age: 44 Year
  Sex: Male
  Weight: 45.36 kg

DRUGS (8)
  1. CLOZAPINE. [Suspect]
     Active Substance: CLOZAPINE
     Indication: SCHIZOPHRENIA
     Dosage: 400 MG,QD
     Route: 048
     Dates: start: 201304, end: 20140718
  2. DEPO-PROVERA [Concomitant]
     Active Substance: MEDROXYPROGESTERONE ACETATE
     Indication: SEXUAL DYSFUNCTION
     Dosage: UNK UNK,QW
  3. INVEGA SUSTENNA [Concomitant]
     Active Substance: PALIPERIDONE PALMITATE
     Indication: SCHIZOPHRENIA
     Dosage: UNK UNK,MONTHLY
  4. CLOZAPINE. [Suspect]
     Active Substance: CLOZAPINE
     Indication: MENTAL DISABILITY
     Dosage: 400 MG,QD
     Route: 048
     Dates: start: 20140721
  5. BENZTROPINE [Concomitant]
     Active Substance: BENZTROPINE
     Dosage: UNK UNK,BID
     Route: 048
  6. TRAZODONE [Concomitant]
     Active Substance: TRAZODONE HYDROCHLORIDE
     Dosage: 50 MG,HS
     Route: 048
  7. HALOPERIDOL. [Concomitant]
     Active Substance: HALOPERIDOL
     Dosage: 5 MG,BID
     Route: 048
  8. CELEXA [Concomitant]
     Active Substance: CITALOPRAM HYDROBROMIDE
     Dosage: 20 MG,QD
     Route: 048

REACTIONS (1)
  - Seizure [Recovered/Resolved]

NARRATIVE: CASE EVENT DATE: 20140718
